FAERS Safety Report 16430376 (Version 1)
Quarter: 2019Q2

REPORT INFORMATION
  Report Type: Spontaneous
  Country: US (occurrence: US)
  Receive Date: 20190507
  Receipt Date: 20190507
  Transmission Date: 20190711
  Serious: No
  Sender: FDA-Public Use
  Company Number: None

PATIENT
  Age: 60 Year

DRUGS (1)
  1. VOTRIENT [Suspect]
     Active Substance: PAZOPANIB HYDROCHLORIDE
     Indication: SYNOVIAL SARCOMA
     Dosage: ?          OTHER DOSE:200-400-600-800 MG;?
     Route: 048
     Dates: start: 20190417

REACTIONS (1)
  - Ulcer [None]

NARRATIVE: CASE EVENT DATE: 201905
